FAERS Safety Report 4434218-9 (Version None)
Quarter: 2004Q3

REPORT INFORMATION
  Report Type: 
  Country: None (occurrence: None)
  Receive Date: 20040825
  Receipt Date: 20040809
  Transmission Date: 20050211
  Serious: Yes (Hospitalization)
  Sender: FDA-Public Use
  Company Number: FR_040403857

PATIENT
  Age: 48 Year
  Sex: Male

DRUGS (6)
  1. ZYPREXA [Suspect]
     Indication: ANXIETY
     Dosage: 10 MG DAY
     Route: 030
     Dates: start: 20040310, end: 20040310
  2. ZYPREXA [Suspect]
     Indication: ANXIETY
     Dosage: 10 MG DAY
     Route: 048
     Dates: start: 20040310, end: 20040312
  3. PAROXETINE HCL [Concomitant]
  4. ATARAX [Concomitant]
  5. TRANXENE [Concomitant]
  6. STILNOX (ZOLPIDEM) [Concomitant]

REACTIONS (9)
  - ACUTE RESPIRATORY FAILURE [None]
  - BLOOD CALCIUM DECREASED [None]
  - BLOOD CREATININE DECREASED [None]
  - BLOOD GLUCOSE INCREASED [None]
  - BLOOD LACTATE DEHYDROGENASE INCREASED [None]
  - BLOOD SODIUM DECREASED [None]
  - INTENTIONAL MISUSE [None]
  - SOMNOLENCE [None]
  - STAPHYLOCOCCAL SEPSIS [None]
